FAERS Safety Report 5163045-2 (Version None)
Quarter: 2006Q4

REPORT INFORMATION
  Report Type: 
  Country: None (occurrence: None)
  Receive Date: 20061201
  Receipt Date: 20020502
  Transmission Date: 20070319
  Serious: Yes (Hospitalization)
  Sender: FDA-Public Use
  Company Number: FR-BOEHRINGER INGELHEIM PHARMACEUTICALS, INC.-2002-FF-00300FF

PATIENT
  Sex: Male
  Weight: 3.48 kg

DRUGS (10)
  1. RETROVIR [Suspect]
     Indication: PROPHYLAXIS AGAINST HIV INFECTION
     Route: 064
     Dates: start: 19990517, end: 19990517
  2. RETROVIR [Suspect]
     Route: 048
  3. RETROVIR [Suspect]
     Route: 064
     Dates: end: 19990517
  4. EPIVIR [Suspect]
     Indication: PROPHYLAXIS AGAINST HIV INFECTION
     Route: 064
     Dates: end: 19990517
  5. FAZOL [Concomitant]
     Route: 064
  6. PEVARYL [Concomitant]
     Route: 064
  7. MOTILIUM [Concomitant]
     Route: 064
  8. GAVISCON [Concomitant]
     Route: 064
  9. IRON [Concomitant]
     Route: 064
  10. VITAMINS [Concomitant]
     Route: 064

REACTIONS (6)
  - ANAEMIA [None]
  - ANAEMIA NEONATAL [None]
  - BLOOD CREATINE PHOSPHOKINASE INCREASED [None]
  - DRUG EXPOSURE DURING PREGNANCY [None]
  - HYPERLACTACIDAEMIA [None]
  - NEUTROPENIA [None]
